FAERS Safety Report 15223420 (Version 2)
Quarter: 2018Q3

REPORT INFORMATION
  Report Type: Report from Study
  Country: FR (occurrence: FR)
  Receive Date: 20180731
  Receipt Date: 20180810
  Transmission Date: 20181010
  Serious: Yes (Disabling, Other)
  Sender: FDA-Public Use
  Company Number: FR-TEVA-2018-FR-932099

PATIENT
  Age: 66 Year
  Sex: Male
  Weight: 90 kg

DRUGS (4)
  1. SUNITINIB [Suspect]
     Active Substance: SUNITINIB
     Dosage: 37.5 MG, QD
     Route: 065
     Dates: start: 20160425, end: 20170904
  2. SUNITINIB [Suspect]
     Active Substance: SUNITINIB
     Indication: PANCREATIC NEUROENDOCRINE TUMOUR METASTATIC
     Dosage: 25 MILLIGRAM DAILY;
     Route: 065
     Dates: start: 20150813
  3. AFINITOR [Suspect]
     Active Substance: EVEROLIMUS
     Indication: PANCREATIC NEUROENDOCRINE TUMOUR METASTATIC
     Dosage: 40 MILLIGRAM DAILY;
     Route: 065
     Dates: start: 20170904, end: 20170910
  4. OCTREOTIDE. [Suspect]
     Active Substance: OCTREOTIDE
     Indication: PANCREATIC NEUROENDOCRINE TUMOUR METASTATIC
     Dosage: 30 MG, QMO (ONCE IN 28 DAYS)
     Route: 030
     Dates: start: 201508

REACTIONS (12)
  - Pancreatic neuroendocrine tumour metastatic [Unknown]
  - Malignant neoplasm progression [Unknown]
  - Hypersensitivity [Unknown]
  - Urticaria [Recovered/Resolved]
  - Swelling [Recovered/Resolved]
  - Mucosal inflammation [Recovered/Resolved]
  - Oedema [Unknown]
  - Flushing [Unknown]
  - Hepatocellular injury [Recovered/Resolved]
  - Erythema [Recovered/Resolved]
  - Oedema [Recovered/Resolved]
  - Rash [Unknown]

NARRATIVE: CASE EVENT DATE: 20170724
